FAERS Safety Report 9130442 (Version 1)
Quarter: 2013Q1

REPORT INFORMATION
  Report Type: Spontaneous
  Country: US (occurrence: US)
  Receive Date: 20130301
  Receipt Date: 20130301
  Transmission Date: 20140127
  Serious: No
  Sender: FDA-Public Use
  Company Number: US-009507513-1302USA007755

PATIENT
  Sex: Female

DRUGS (1)
  1. ALENDRONATE SODIUIM [Suspect]
     Indication: OSTEOPENIA
     Dosage: 70 MG, QW
     Route: 048
     Dates: start: 20121128, end: 201211

REACTIONS (1)
  - Diarrhoea [Recovered/Resolved]
